FAERS Safety Report 19754507 (Version 1)
Quarter: 2021Q3

REPORT INFORMATION
  Report Type: Report from Study
  Country: US (occurrence: US)
  Receive Date: 20210827
  Receipt Date: 20210827
  Transmission Date: 20211014
  Serious: Yes (Life-Threatening, Hospitalization, Other)
  Sender: FDA-Public Use
  Company Number: US-ASTRAZENECA-2021A697478

PATIENT
  Age: 23988 Day
  Sex: Male

DRUGS (1)
  1. BRILINTA [Suspect]
     Active Substance: TICAGRELOR
     Route: 048

REACTIONS (4)
  - Urinary tract infection [Recovered/Resolved]
  - Fall [Recovering/Resolving]
  - Lower limb fracture [Recovering/Resolving]
  - Urosepsis [Recovered/Resolved]

NARRATIVE: CASE EVENT DATE: 20210628
